FAERS Safety Report 9791636 (Version 3)
Quarter: 2014Q1

REPORT INFORMATION
  Report Type: Spontaneous
  Country: JP (occurrence: JP)
  Receive Date: 20140102
  Receipt Date: 20140213
  Transmission Date: 20141002
  Serious: Yes (Life-Threatening, Hospitalization)
  Sender: FDA-Public Use
  Company Number: JP-MERCK-1309JPN011551

PATIENT
  Age: 58 Year
  Sex: Male

DRUGS (6)
  1. GLACTIV [Suspect]
     Indication: TYPE 2 DIABETES MELLITUS
     Dosage: 50 MG, QD
     Route: 048
     Dates: start: 20110811, end: 20130820
  2. METGLUCO [Concomitant]
     Dosage: UNK
     Dates: start: 201108, end: 20130820
  3. OLMETEC [Concomitant]
     Dosage: UNK
     Dates: end: 20130820
  4. AMARYL [Concomitant]
     Dosage: UNK
     Dates: end: 20130820
  5. LIVALO [Concomitant]
     Dosage: UNK
     Dates: end: 20130820
  6. AMLODIPINE BESYLATE [Concomitant]
     Dosage: UNK
     Dates: end: 20130820

REACTIONS (2)
  - Renal disorder [Recovered/Resolved]
  - Dehydration [Unknown]
